FAERS Safety Report 7620711-4 (Version None)
Quarter: 2011Q3

REPORT INFORMATION
  Report Type: 
  Country: None (occurrence: None)
  Receive Date: 20110719
  Receipt Date: 20110718
  Transmission Date: 20111222
  Serious: Yes (Other)
  Sender: FDA-Public Use
  Company Number: US-GLAXOSMITHKLINE-A0937076A

PATIENT
  Age: 78 Year
  Sex: Female

DRUGS (16)
  1. ZEGERID [Concomitant]
  2. FERROUS SULFATE TAB [Concomitant]
  3. GLIMEPIRIDE [Concomitant]
  4. MULTI-VITAMIN [Concomitant]
  5. LOSARTAN [Concomitant]
  6. PULMICORT [Concomitant]
  7. PROAIR HFA [Concomitant]
  8. CALCIUM CARBONATE [Concomitant]
  9. PROMACTA [Suspect]
     Indication: PLATELET COUNT
     Dosage: 50MGK PER DAY
     Route: 048
     Dates: start: 20110511
  10. PREDNISONE [Concomitant]
  11. SIMVASTATIN [Concomitant]
  12. METFORMIN HCL [Concomitant]
  13. TYLENOL-500 [Concomitant]
  14. LEVOTHYROXINE SODIUM [Concomitant]
  15. ONDANSETRON [Concomitant]
  16. FLUTICASONE PROPIONATE [Concomitant]

REACTIONS (3)
  - DIARRHOEA [None]
  - VAGINAL HAEMORRHAGE [None]
  - ABDOMINAL PAIN UPPER [None]
